FAERS Safety Report 7716823-7 (Version None)
Quarter: 2011Q3

REPORT INFORMATION
  Report Type: 
  Country: None (occurrence: None)
  Receive Date: 20110829
  Receipt Date: 20110823
  Transmission Date: 20111222
  Serious: Yes (Death)
  Sender: FDA-Public Use
  Company Number: US-ASTRAZENECA-2011SE47720

PATIENT
  Age: 63 Year
  Sex: Male

DRUGS (3)
  1. TOPROL-XL [Suspect]
     Route: 048
  2. PLAVIX [Concomitant]
  3. CRESTOR [Suspect]
     Route: 048

REACTIONS (1)
  - LUNG DISORDER [None]
